FAERS Safety Report 23725459 (Version 1)
Quarter: 2024Q2

REPORT INFORMATION
  Report Type: Spontaneous
  Country: FR (occurrence: FR)
  Receive Date: 20240410
  Receipt Date: 20240410
  Transmission Date: 20240715
  Serious: Yes (Other)
  Sender: FDA-Public Use
  Company Number: FR-CELLTRION INC.-2024FR008277

PATIENT

DRUGS (9)
  1. RITUXIMAB [Suspect]
     Active Substance: RITUXIMAB
     Indication: B-cell lymphoma
     Dosage: 375 MG/M2, EVERY 21 DAYS
     Route: 042
     Dates: start: 20170424
  2. FILGRASTIM [Suspect]
     Active Substance: FILGRASTIM
     Indication: Neutropenia
     Dosage: UNK
     Route: 058
     Dates: start: 20210209, end: 20210215
  3. CYTARABINE [Suspect]
     Active Substance: CYTARABINE
     Indication: B-cell lymphoma
     Dosage: 2000 MG/M2, EVERY 21 DAYS
     Route: 042
     Dates: start: 20210203
  4. OXALIPLATIN [Suspect]
     Active Substance: OXALIPLATIN
     Indication: B-cell lymphoma
     Dosage: 130 MG/M2, EVERY 21 DAYS
     Route: 042
     Dates: start: 20210203
  5. DEXAMETHASONE [Concomitant]
     Active Substance: DEXAMETHASONE
     Dosage: 80 MG, EVERY 21 DAYS
     Route: 042
     Dates: start: 20210205
  6. ONDANSETRON [Concomitant]
     Active Substance: ONDANSETRON
     Dosage: 2 DF, EVERY 21 DAYS
     Route: 048
     Dates: start: 20210203
  7. APREPITANT [Concomitant]
     Active Substance: APREPITANT
     Dosage: 3 DF, EVERY 21 DAYS
     Route: 048
     Dates: start: 20210203
  8. OMEPRAZOLE [Concomitant]
     Active Substance: OMEPRAZOLE
     Dosage: 1 DF, EVERY 21 DAYS
     Route: 048
     Dates: start: 20210203
  9. METOCLOPRAMIDE [Concomitant]
     Active Substance: METOCLOPRAMIDE
     Route: 048

REACTIONS (1)
  - Hepatic cytolysis [Recovering/Resolving]

NARRATIVE: CASE EVENT DATE: 20210222
